FAERS Safety Report 11911595 (Version 1)
Quarter: 2016Q1

REPORT INFORMATION
  Report Type: Spontaneous
  Country: AU (occurrence: AU)
  Receive Date: 20160112
  Receipt Date: 20160112
  Transmission Date: 20160526
  Serious: Yes (Hospitalization)
  Sender: FDA-Public Use
  Company Number: AU-APOTEX-2016AP005002

PATIENT
  Age: 74 Year
  Sex: Female

DRUGS (4)
  1. GENRX MIRTAZAPINE [Suspect]
     Active Substance: MIRTAZAPINE
     Dosage: 0.5 MG, QD
     Route: 065
  2. VALIUM [Concomitant]
     Active Substance: DIAZEPAM
     Indication: PRODUCT USED FOR UNKNOWN INDICATION
     Dosage: 3 DF, QD
     Route: 065
  3. VALIUM [Concomitant]
     Active Substance: DIAZEPAM
     Dosage: 1 DF, QD
     Route: 065
  4. GENRX MIRTAZAPINE [Suspect]
     Active Substance: MIRTAZAPINE
     Indication: PRODUCT USED FOR UNKNOWN INDICATION
     Dosage: 1 DF, QD
     Route: 065

REACTIONS (14)
  - Malaise [Not Recovered/Not Resolved]
  - Personality change [Not Recovered/Not Resolved]
  - Decreased appetite [Not Recovered/Not Resolved]
  - Memory impairment [Not Recovered/Not Resolved]
  - Anxiety [Unknown]
  - Renal cyst [Not Recovered/Not Resolved]
  - Eating disorder [Unknown]
  - Ovarian cyst [Not Recovered/Not Resolved]
  - Abdominal pain upper [Not Recovered/Not Resolved]
  - Hypotension [Not Recovered/Not Resolved]
  - Regurgitation [Not Recovered/Not Resolved]
  - Eye disorder [Not Recovered/Not Resolved]
  - Sleep disorder [Unknown]
  - Somnolence [Not Recovered/Not Resolved]
